FAERS Safety Report 10767053 (Version 6)
Quarter: 2016Q1

REPORT INFORMATION
  Report Type: Report from Study
  Country: CA (occurrence: CA)
  Receive Date: 20150205
  Receipt Date: 20160307
  Transmission Date: 20160525
  Serious: Yes (Other)
  Sender: FDA-Public Use
  Company Number: PHHY2013CA111051

PATIENT
  Age: 45 Year
  Sex: Female

DRUGS (8)
  1. EXJADE [Suspect]
     Active Substance: DEFERASIROX
     Dosage: 1000 MG, QD
     Route: 048
     Dates: end: 20140910
  2. EXJADE [Suspect]
     Active Substance: DEFERASIROX
     Dosage: 1500 MG, QD
     Route: 048
  3. EXJADE [Suspect]
     Active Substance: DEFERASIROX
     Dosage: 1500 MG, QD
     Route: 048
  4. RITUXIMAB [Concomitant]
     Active Substance: RITUXIMAB
     Indication: APLASIA PURE RED CELL
     Route: 041
  5. EXJADE [Suspect]
     Active Substance: DEFERASIROX
     Indication: APLASIA PURE RED CELL
     Dosage: 1500 MG, QD
     Route: 048
     Dates: start: 20130701
  6. EXJADE [Suspect]
     Active Substance: DEFERASIROX
     Dosage: 1000 MG, QD
     Route: 048
     Dates: start: 20140918
  7. EXJADE [Suspect]
     Active Substance: DEFERASIROX
     Dosage: 1000 MG, QD
     Route: 048
  8. EXJADE [Suspect]
     Active Substance: DEFERASIROX
     Dosage: 2000 MG,(QD ON WEEK DAYS AND OFF ON WEEKENDS)
     Route: 048

REACTIONS (23)
  - Hiccups [Recovering/Resolving]
  - Gastrointestinal disorder [Recovered/Resolved]
  - Dyspepsia [Not Recovered/Not Resolved]
  - Urinary tract infection [Unknown]
  - Gastrooesophageal reflux disease [Unknown]
  - Gastroenteritis viral [Unknown]
  - Malaise [Unknown]
  - Nausea [Unknown]
  - Joint swelling [Unknown]
  - Protein urine present [Unknown]
  - Influenza [Unknown]
  - Blood urine present [Unknown]
  - Decreased appetite [Recovering/Resolving]
  - Abdominal discomfort [Unknown]
  - Diarrhoea [Unknown]
  - Peripheral swelling [Recovering/Resolving]
  - Kidney infection [Unknown]
  - Abdominal distension [Recovering/Resolving]
  - Weight increased [Unknown]
  - Fatigue [Unknown]
  - Gastrointestinal disorder [Recovering/Resolving]
  - Abdominal pain [Recovered/Resolved]
  - Rash [Unknown]

NARRATIVE: CASE EVENT DATE: 20130923
